FAERS Safety Report 9447286 (Version 1)
Quarter: 2013Q3

REPORT INFORMATION
  Report Type: Report from Study
  Country: US (occurrence: US)
  Receive Date: 20130808
  Receipt Date: 20130808
  Transmission Date: 20140515
  Serious: Yes (Other)
  Sender: FDA-Public Use
  Company Number: US-ROCHE-1256472

PATIENT
  Sex: Male

DRUGS (14)
  1. XELODA [Suspect]
     Indication: RENAL CANCER
     Route: 048
  2. NAPROSYN [Suspect]
     Indication: PRODUCT USED FOR UNKNOWN INDICATION
     Route: 065
  3. CYCLOBENZAPRINE [Concomitant]
     Route: 065
  4. LORATADINE [Concomitant]
     Route: 065
  5. ADRUCIL [Concomitant]
     Route: 042
  6. ELOXATIN [Concomitant]
     Route: 042
  7. FUSILEV [Concomitant]
     Route: 042
  8. ONDANSETRON [Concomitant]
  9. OMEPRAZOLE [Concomitant]
  10. ASA EC [Concomitant]
  11. TYLENOL [Concomitant]
  12. HYDROCODONE HCL [Concomitant]
  13. PALONOSETRON [Concomitant]
     Route: 042
  14. DEXAMETHASONE [Concomitant]
     Route: 042

REACTIONS (11)
  - Pancytopenia [Unknown]
  - Adenocarcinoma [Unknown]
  - Metastases to liver [Unknown]
  - Thrombocytopenia [Unknown]
  - Fatigue [Unknown]
  - Haematuria [Unknown]
  - Gastrointestinal neoplasm [Unknown]
  - Neuropathy peripheral [Unknown]
  - Renal cancer [Unknown]
  - Hypoaesthesia [Unknown]
  - Nausea [Unknown]
